FAERS Safety Report 25496780 (Version 1)
Quarter: 2025Q3

REPORT INFORMATION
  Report Type: Spontaneous
  Country: US (occurrence: US)
  Receive Date: 20250701
  Receipt Date: 20250701
  Transmission Date: 20251021
  Serious: Yes (Hospitalization, Other)
  Sender: AMNEAL
  Company Number: US-AMNEAL PHARMACEUTICALS-2025-AMRX-02445

PATIENT
  Age: 54 Year
  Sex: Female

DRUGS (2)
  1. HERBALS\TURMERIC [Suspect]
     Active Substance: HERBALS\TURMERIC
     Indication: Product used for unknown indication
     Dosage: 1 CAPSULES, DAILY
     Route: 065
  2. HERBALS\TURMERIC [Suspect]
     Active Substance: HERBALS\TURMERIC
     Dosage: 5 CAPSULES, DAILY
     Route: 065

REACTIONS (4)
  - Haematochezia [Recovered/Resolved]
  - Back pain [Unknown]
  - Drug interaction [Unknown]
  - Diarrhoea [Unknown]
